FAERS Safety Report 8364327-3 (Version None)
Quarter: 2012Q2

REPORT INFORMATION
  Report Type: 
  Country: None (occurrence: None)
  Receive Date: 20120516
  Receipt Date: 20120511
  Transmission Date: 20120825
  Serious: No
  Sender: FDA-Public Use
  Company Number: US-PFIZER INC-2012098514

PATIENT
  Sex: Female

DRUGS (5)
  1. GLIMEPIRIDE [Concomitant]
     Indication: DIABETES MELLITUS
     Dosage: UNK
  2. LOSARTAN [Concomitant]
     Indication: PROPHYLAXIS
     Dosage: UNK
  3. CRESTOR [Concomitant]
     Dosage: UNK
  4. CELEBREX [Suspect]
     Indication: BACK PAIN
     Dosage: 200 MG, 1X/DAY
     Route: 048
     Dates: start: 20120420
  5. METFORMIN [Concomitant]
     Indication: DIABETES MELLITUS
     Dosage: UNK

REACTIONS (3)
  - DRUG INEFFECTIVE [None]
  - BACK PAIN [None]
  - FATIGUE [None]
